FAERS Safety Report 6370623-1 (Version None)
Quarter: 2009Q3

REPORT INFORMATION
  Report Type: 
  Country: None (occurrence: None)
  Receive Date: 20090918
  Receipt Date: 20090907
  Transmission Date: 20100115
  Serious: Yes (Hospitalization)
  Sender: FDA-Public Use
  Company Number: 2009AL005927

PATIENT
  Age: 51 Year
  Sex: Female

DRUGS (4)
  1. EPIRUBICIN HYDROCHLORIDE INJECTION [Suspect]
  2. PACLITAXEL [Concomitant]
  3. GEMCITABINE [Concomitant]
  4. CYCLOPHOSPHAMIDE [Concomitant]

REACTIONS (1)
  - PERIPHERAL ISCHAEMIA [None]
